FAERS Safety Report 22587519 (Version 1)
Quarter: 2023Q2

REPORT INFORMATION
  Report Type: Spontaneous
  Country: BE (occurrence: BE)
  Receive Date: 20230612
  Receipt Date: 20230612
  Transmission Date: 20230722
  Serious: Yes (Other)
  Sender: FDA-Public Use
  Company Number: None

PATIENT

DRUGS (1)
  1. ZOLPIDEM [Suspect]
     Active Substance: ZOLPIDEM TARTRATE
     Indication: Product used for unknown indication
     Dosage: UNK (4 BOITES DE ZOLPIDEM CE 22/05, 3 BOITES LE 17/05, 4 BOITES LE 12/05)
     Route: 065

REACTIONS (1)
  - Drug abuse [Unknown]
